FAERS Safety Report 8239443-7 (Version None)
Quarter: 2012Q1

REPORT INFORMATION
  Report Type: 
  Country: None (occurrence: None)
  Receive Date: 20120326
  Receipt Date: 20120313
  Transmission Date: 20120608
  Serious: Yes (Death)
  Sender: FDA-Public Use
  Company Number: 2012DE0100

PATIENT
  Age: 65 Year
  Sex: Male

DRUGS (2)
  1. LEF (LEF) ??/NOV/2003 - ??/SEP/2004 [Concomitant]
  2. ANAKINRA (ANAKINRA) [Suspect]
     Indication: RHEUMATOID ARTHRITIS
     Dates: start: 20030901, end: 20031101

REACTIONS (1)
  - DEATH [None]
